FAERS Safety Report 8165640-5 (Version None)
Quarter: 2012Q1

REPORT INFORMATION
  Report Type: 
  Country: None (occurrence: None)
  Receive Date: 20120223
  Receipt Date: 20120223
  Transmission Date: 20120608
  Serious: Yes (Other)
  Sender: FDA-Public Use
  Company Number: None

PATIENT
  Age: 54 Year
  Sex: Female
  Weight: 77.1115 kg

DRUGS (1)
  1. AUGMENTIN '875' [Suspect]
     Indication: SINUSITIS
     Dosage: 875 MG TAKE 1  2X DAY
     Dates: start: 20120105, end: 20120108

REACTIONS (5)
  - HEADACHE [None]
  - DIARRHOEA [None]
  - MIGRAINE [None]
  - NAUSEA [None]
  - VOMITING [None]
